FAERS Safety Report 10121192 (Version 1)
Quarter: 2014Q2

REPORT INFORMATION
  Report Type: Spontaneous
  Country: CH (occurrence: CH)
  Receive Date: 20140425
  Receipt Date: 20140425
  Transmission Date: 20141212
  Serious: Yes (Hospitalization)
  Sender: FDA-Public Use
  Company Number: CH-BAXTER-2014BAX019669

PATIENT
  Age: 19 Year
  Sex: Male

DRUGS (9)
  1. ENDOXAN 1G [Suspect]
     Indication: ALVEOLAR RHABDOMYOSARCOMA
     Route: 065
     Dates: start: 201402
  2. ENDOXAN 1G [Suspect]
     Route: 065
     Dates: start: 20140305
  3. TOPOTECAN [Suspect]
     Indication: ALVEOLAR RHABDOMYOSARCOMA
     Route: 065
     Dates: start: 201402
  4. TOPOTECAN [Suspect]
     Route: 065
     Dates: start: 20140305
  5. IRINOTECAN [Concomitant]
     Indication: PRODUCT USED FOR UNKNOWN INDICATION
     Route: 065
     Dates: start: 201403
  6. TEMOZOLOMIDE [Concomitant]
     Indication: PRODUCT USED FOR UNKNOWN INDICATION
     Route: 065
     Dates: start: 201403
  7. SIROLIMUS [Concomitant]
     Indication: PRODUCT USED FOR UNKNOWN INDICATION
     Route: 065
     Dates: start: 201403
  8. DASATINIB [Concomitant]
     Indication: PRODUCT USED FOR UNKNOWN INDICATION
     Route: 065
     Dates: start: 201403
  9. GRANULOCYTE COLONY-STIMULATING FACTOR NOS [Concomitant]
     Indication: PRODUCT USED FOR UNKNOWN INDICATION
     Route: 065

REACTIONS (3)
  - Thrombocytopenia [Unknown]
  - Leukopenia [Unknown]
  - Disease progression [Unknown]
